FAERS Safety Report 24378354 (Version 1)
Quarter: 2024Q3

REPORT INFORMATION
  Report Type: Spontaneous
  Country: CZ (occurrence: CZ)
  Receive Date: 20240930
  Receipt Date: 20240930
  Transmission Date: 20241016
  Serious: Yes (Hospitalization, Disabling, Other)
  Sender: AMGEN
  Company Number: None

PATIENT
  Age: 79 Year
  Sex: Female
  Weight: 67 kg

DRUGS (3)
  1. PROLIA [Suspect]
     Active Substance: DENOSUMAB
     Indication: Osteoporosis
     Dosage: EVERY HALF A YEAR
     Route: 058
     Dates: start: 201901, end: 20240905
  2. CINACALCET HYDROCHLORIDE [Concomitant]
     Active Substance: CINACALCET HYDROCHLORIDE
     Indication: Hyperparathyroidism primary
     Dosage: UNK
     Route: 065
     Dates: start: 201606
  3. Vigantol [Concomitant]
     Indication: Osteoporosis
     Dosage: 3 DROP
     Route: 048
     Dates: start: 2009

REACTIONS (2)
  - Treatment failure [Unknown]
  - Atypical fracture [Not Recovered/Not Resolved]

NARRATIVE: CASE EVENT DATE: 20240910
